FAERS Safety Report 6248140-9 (Version None)
Quarter: 2009Q2

REPORT INFORMATION
  Report Type: 
  Country: None (occurrence: None)
  Receive Date: 20090624
  Receipt Date: 20090624
  Transmission Date: 20091009
  Serious: Yes (Other)
  Sender: FDA-Public Use
  Company Number: None

PATIENT
  Sex: Female
  Weight: 70.7611 kg

DRUGS (1)
  1. LEVAQUIN [Suspect]
     Indication: COLONOSCOPY
     Dosage: ONE A DAY
     Dates: start: 20090519, end: 20090526

REACTIONS (12)
  - ANOREXIA [None]
  - ARTHRALGIA [None]
  - ASTHENIA [None]
  - DIARRHOEA [None]
  - FATIGUE [None]
  - FLUSHING [None]
  - HYPOAESTHESIA [None]
  - INSOMNIA [None]
  - MUSCULAR WEAKNESS [None]
  - MUSCULOSKELETAL PAIN [None]
  - PAIN IN EXTREMITY [None]
  - PARAESTHESIA [None]
